FAERS Safety Report 4849113-0 (Version None)
Quarter: 2005Q4

REPORT INFORMATION
  Report Type: 
  Country: None (occurrence: None)
  Receive Date: 20051209
  Receipt Date: 20051128
  Transmission Date: 20060501
  Serious: Yes (Other)
  Sender: FDA-Public Use
  Company Number: FR-GLAXOSMITHKLINE-B0402014A

PATIENT
  Age: 61 Year
  Sex: Male
  Weight: 75 kg

DRUGS (3)
  1. DUTASTERIDE [Suspect]
     Dosage: .5MG PER DAY
     Dates: start: 20040610, end: 20051128
  2. TAMSULOSIN [Suspect]
     Dosage: .4MG PER DAY
     Dates: start: 20040610, end: 20051128
  3. RYTHMOL [Concomitant]
     Indication: ATRIAL FIBRILLATION

REACTIONS (6)
  - ANAEMIA [None]
  - APLASIA [None]
  - DYSPNOEA EXERTIONAL [None]
  - LEUKOPENIA [None]
  - MUCOSAL DISCOLOURATION [None]
  - THROMBOCYTOPENIA [None]
